FAERS Safety Report 6479963-9 (Version None)
Quarter: 2009Q4

REPORT INFORMATION
  Report Type: 
  Country: None (occurrence: None)
  Receive Date: 20091208
  Receipt Date: 20091125
  Transmission Date: 20100525
  Serious: Yes (Hospitalization)
  Sender: FDA-Public Use
  Company Number: FR-SANOFI-AVENTIS-2009SA004340

PATIENT
  Age: 57 Year
  Sex: Male

DRUGS (6)
  1. STILNOX [Suspect]
     Route: 048
     Dates: start: 20091007, end: 20091013
  2. DIAMOX SRC [Suspect]
     Route: 048
     Dates: start: 20090929, end: 20091013
  3. COVERSYL /FRA/ [Suspect]
     Route: 048
     Dates: start: 20090928, end: 20091013
  4. PREVISCAN [Suspect]
     Route: 048
     Dates: start: 20090928, end: 20091013
  5. MOPRAL [Suspect]
     Route: 048
     Dates: start: 20090927, end: 20091013
  6. CONTRAMAL [Suspect]
     Route: 048
     Dates: start: 20090928, end: 20091013

REACTIONS (5)
  - ACUTE GENERALISED EXANTHEMATOUS PUSTULOSIS [None]
  - AGRANULOCYTOSIS [None]
  - ENANTHEMA [None]
  - FACE OEDEMA [None]
  - PRURITUS [None]
